FAERS Safety Report 5743917-8 (Version None)
Quarter: 2008Q2

REPORT INFORMATION
  Report Type: 
  Country: None (occurrence: None)
  Receive Date: 20080520
  Receipt Date: 20080515
  Transmission Date: 20081010
  Serious: Yes (Life-Threatening, Hospitalization, Congenital Anomaly)
  Sender: FDA-Public Use
  Company Number: AT-JNJFOC-20080502823

PATIENT

DRUGS (5)
  1. RISPERDAL CONSTA [Suspect]
     Indication: DRUG EXPOSURE DURING PREGNANCY
  2. FERRETAB [Suspect]
     Indication: DRUG EXPOSURE DURING PREGNANCY
  3. MAGNESIUM VERLA [Suspect]
     Indication: DRUG EXPOSURE DURING PREGNANCY
  4. PREGNAVIT [Suspect]
     Indication: DRUG EXPOSURE DURING PREGNANCY
  5. RENNIE ANTACIDUM PEPPERMINT [Suspect]
     Indication: DRUG EXPOSURE DURING PREGNANCY

REACTIONS (4)
  - ATRIOVENTRICULAR BLOCK SECOND DEGREE [None]
  - BRADYARRHYTHMIA [None]
  - LONG QT SYNDROME [None]
  - PULMONARY ARTERY STENOSIS CONGENITAL [None]
